FAERS Safety Report 12546994 (Version 1)
Quarter: 2016Q3

REPORT INFORMATION
  Report Type: Spontaneous
  Country: US (occurrence: US)
  Receive Date: 20160711
  Receipt Date: 20160711
  Transmission Date: 20161109
  Serious: No
  Sender: FDA-Public Use
  Company Number: US-ELI_LILLY_AND_COMPANY-US201607001466

PATIENT
  Age: 70 Year
  Sex: Female

DRUGS (1)
  1. HUMAN NPL INSULIN (RDNA) [Suspect]
     Active Substance: INSULIN LISPRO
     Indication: TYPE 2 DIABETES MELLITUS
     Dosage: UNK, UNKNOWN
     Route: 065

REACTIONS (7)
  - Dysarthria [Unknown]
  - Gait disturbance [Unknown]
  - Aphasia [Unknown]
  - Feeling abnormal [Unknown]
  - Dysstasia [Unknown]
  - Somnolence [None]
  - Feeling drunk [None]
